FAERS Safety Report 7398086-8 (Version None)
Quarter: 2011Q2

REPORT INFORMATION
  Report Type: 
  Country: None (occurrence: None)
  Receive Date: 20110406
  Receipt Date: 20110328
  Transmission Date: 20111010
  Serious: Yes (Death)
  Sender: FDA-Public Use
  Company Number: US-ELI_LILLY_AND_COMPANY-US201103003250

PATIENT
  Sex: Female

DRUGS (10)
  1. NORCO [Concomitant]
     Dosage: 10 MG 1.2, EVERY 4 HRS PRN
  2. PALONOSETRON [Concomitant]
     Dosage: UNK
     Route: 042
     Dates: start: 20100205
  3. GEMZAR [Suspect]
     Dosage: 1625 MG, WEEKLY (1/W)
     Route: 042
     Dates: start: 20100205, end: 20100319
  4. LASIX [Concomitant]
     Dosage: 1-2 20 MG, DAILY PRN
     Route: 048
  5. MS CONTIN [Concomitant]
     Dosage: 15 MG, BID
     Route: 048
  6. ROXANOL [Concomitant]
     Dosage: 20-30 MG, 1 HR PRN
     Route: 048
  7. MS-IR [Concomitant]
     Dosage: 1-2 15 MG, EVERY 6 HRS PRN
  8. MANNITOL [Concomitant]
     Dosage: UNK
     Dates: start: 20100205
  9. LEVAQUIN [Concomitant]
     Dosage: 500 MG, QD
     Route: 048
  10. FILGRASTIM [Concomitant]
     Dosage: 480 UG, UNK
     Route: 058
     Dates: start: 20100208

REACTIONS (2)
  - NEOPLASM MALIGNANT [None]
  - HOSPICE CARE [None]
